FAERS Safety Report 7440160-1 (Version None)
Quarter: 2011Q2

REPORT INFORMATION
  Report Type: 
  Country: None (occurrence: None)
  Receive Date: 20110427
  Receipt Date: 20110423
  Transmission Date: 20111010
  Serious: Yes (Disabling)
  Sender: FDA-Public Use
  Company Number: VE-ROCHE-773135

PATIENT
  Sex: Female
  Weight: 63 kg

DRUGS (3)
  1. XELODA [Suspect]
     Indication: COLON CANCER
     Route: 048
     Dates: start: 20110321
  2. OXALIPLATIN [Concomitant]
     Indication: COLON CANCER
     Dosage: FREQUENCY: CYCLIC
     Route: 042
  3. AVASTIN [Suspect]
     Indication: COLON CANCER
     Dosage: FREQUENCY: CYCLIC
     Route: 042
     Dates: start: 20110301

REACTIONS (2)
  - PALMAR-PLANTAR ERYTHRODYSAESTHESIA SYNDROME [None]
  - DIARRHOEA [None]
